FAERS Safety Report 9550286 (Version 1)
Quarter: 2013Q3

REPORT INFORMATION
  Report Type: Spontaneous
  Country: US (occurrence: US)
  Receive Date: 20130924
  Receipt Date: 20130924
  Transmission Date: 20140515
  Serious: No
  Sender: FDA-Public Use
  Company Number: US-SANOFI-AVENTIS-2013SA071549

PATIENT
  Age: 47 Year
  Sex: Male
  Weight: 97.5 kg

DRUGS (5)
  1. AUBAGIO [Suspect]
     Indication: MULTIPLE SCLEROSIS RELAPSE
     Dosage: JAN -2013
     Route: 048
     Dates: start: 2013
  2. AMBIEN [Concomitant]
     Indication: INSOMNIA
  3. GABAPENTIN [Concomitant]
     Dates: start: 201109
  4. WELLBUTRIN [Concomitant]
     Dates: start: 2012
  5. FAMPRIDINE [Concomitant]

REACTIONS (1)
  - Alopecia [Not Recovered/Not Resolved]
